FAERS Safety Report 5690272-8 (Version None)
Quarter: 2008Q2

REPORT INFORMATION
  Report Type: 
  Country: None (occurrence: None)
  Receive Date: 20080401
  Receipt Date: 20080319
  Transmission Date: 20081010
  Serious: Yes (Other)
  Sender: FDA-Public Use
  Company Number: FR-ELI_LILLY_AND_COMPANY-FR200803004819

PATIENT
  Age: 87 Year
  Sex: Female

DRUGS (2)
  1. FORTEO [Suspect]
     Indication: OSTEOPOROSIS
     Dosage: 20 UG, DAILY (1/D)
     Route: 058
     Dates: start: 20071201, end: 20080319
  2. TRIATEC [Concomitant]
     Indication: NEPHROTIC SYNDROME
     Dates: end: 20080316

REACTIONS (3)
  - EOSINOPHILIA [None]
  - LARYNGEAL OEDEMA [None]
  - NEPHROTIC SYNDROME [None]
